FAERS Safety Report 18777032 (Version 3)
Quarter: 2021Q4

REPORT INFORMATION
  Report Type: Spontaneous
  Country: US (occurrence: US)
  Receive Date: 20210123
  Receipt Date: 20211001
  Transmission Date: 20220303
  Serious: Yes (Hospitalization)
  Sender: FDA-Public Use
  Company Number: US-ROCHE-2755126

PATIENT
  Age: 73 Year
  Sex: Female

DRUGS (13)
  1. ESBRIET [Suspect]
     Active Substance: PIRFENIDONE
     Indication: Idiopathic pulmonary fibrosis
     Dosage: ONGOING-YES
     Route: 048
     Dates: start: 20191107
  2. COREG [Concomitant]
     Active Substance: CARVEDILOL
  3. GLIPIZIDE [Concomitant]
     Active Substance: GLIPIZIDE
  4. TRADJENTA [Concomitant]
     Active Substance: LINAGLIPTIN
  5. SIMVASTATIN [Concomitant]
     Active Substance: SIMVASTATIN
  6. SPIRONOLACTONE [Concomitant]
     Active Substance: SPIRONOLACTONE
  7. LOSARTAN [Concomitant]
     Active Substance: LOSARTAN
  8. GLIMEPIRIDE [Concomitant]
     Active Substance: GLIMEPIRIDE
  9. ELIQUIS [Concomitant]
     Active Substance: APIXABAN
  10. NITROGLYCERIN [Concomitant]
     Active Substance: NITROGLYCERIN
  11. FUROSEMIDE [Concomitant]
     Active Substance: FUROSEMIDE
  12. ACTOS [Concomitant]
     Active Substance: PIOGLITAZONE HYDROCHLORIDE
  13. GABAPENTIN [Concomitant]
     Active Substance: GABAPENTIN

REACTIONS (3)
  - Atrial fibrillation [Unknown]
  - Fatigue [Unknown]
  - Amnesia [Unknown]

NARRATIVE: CASE EVENT DATE: 20201201
